FAERS Safety Report 19028840 (Version 1)
Quarter: 2021Q1

REPORT INFORMATION
  Report Type: Spontaneous
  Country: CN (occurrence: CN)
  Receive Date: 20210319
  Receipt Date: 20210319
  Transmission Date: 20210420
  Serious: Yes (Other)
  Sender: FDA-Public Use
  Company Number: CN-009507513-2103CHN003989

PATIENT
  Age: 28 Year
  Sex: Female
  Weight: 45 kg

DRUGS (6)
  1. SODIUM CHLORIDE. [Concomitant]
     Active Substance: SODIUM CHLORIDE
     Dosage: 250 MILLILITER, 1 TIME 1 DAY
     Dates: start: 20210116, end: 20210116
  2. SODIUM CHLORIDE. [Concomitant]
     Active Substance: SODIUM CHLORIDE
     Dosage: 100 MILLILITER, 1 TIME 1 DAY (ALSO REPORTED AS EVERY 21 DAYS)
     Dates: start: 20210116, end: 20210116
  3. AVASTIN [Suspect]
     Active Substance: BEVACIZUMAB
     Indication: GASTRIC CANCER
     Dosage: 0.18 GRAM, 1 TIME 1 DAY
     Dates: start: 20210116, end: 20210116
  4. KEYTRUDA [Suspect]
     Active Substance: PEMBROLIZUMAB
     Indication: GASTRIC CANCER
     Dosage: 200 MILLIGRAM, 1 TIME IN 1 DAY
     Route: 041
     Dates: start: 20210116, end: 20210116
  5. CAMPTO [Suspect]
     Active Substance: IRINOTECAN
     Indication: GASTRIC CANCER
     Dosage: 0.24 GRAM, 1 TIME 1 DAY
     Route: 041
     Dates: start: 20210116, end: 20210116
  6. SODIUM CHLORIDE. [Concomitant]
     Active Substance: SODIUM CHLORIDE
     Indication: GASTRIC CANCER
     Dosage: 100 MILLILITER, 1 TIME 1 DAY (ALSO REPORTED AS EVERY 14 DAYS)
     Dates: start: 20210116, end: 20210116

REACTIONS (1)
  - Gastric perforation [Not Recovered/Not Resolved]

NARRATIVE: CASE EVENT DATE: 20210124
